FAERS Safety Report 16361695 (Version 1)
Quarter: 2019Q3

REPORT INFORMATION
  Report Type: Spontaneous
  Country: US (occurrence: US)
  Receive Date: 20190524
  Receipt Date: 20190524
  Transmission Date: 20191004
  Serious: Yes (Disabling)
  Sender: FDA-Public Use
  Company Number: None

PATIENT
  Age: 33 Year
  Sex: Female
  Weight: 67.5 kg

DRUGS (3)
  1. NITROFURANTOIN MONOHYDRATE MACROCRYSTALS [Suspect]
     Active Substance: NITROFURANTOIN\NITROFURANTOIN MONOHYDRATE
     Indication: URINARY TRACT INFECTION
     Dosage: ?          QUANTITY:1 TABLET(S);?
     Route: 048
     Dates: start: 20190519, end: 20190522
  2. BUSPIRONE [Concomitant]
     Active Substance: BUSPIRONE HYDROCHLORIDE
  3. TRIAMCINOLONE OINTMENT [Concomitant]

REACTIONS (14)
  - Pyrexia [None]
  - Chills [None]
  - Malaise [None]
  - Back pain [None]
  - Granulocyte count increased [None]
  - Hyperaesthesia [None]
  - Hepatitis [None]
  - Gastritis [None]
  - Influenza like illness [None]
  - Liver injury [None]
  - Viral infection [None]
  - Sunburn [None]
  - Lymphocyte count decreased [None]
  - Urine ketone body present [None]

NARRATIVE: CASE EVENT DATE: 20190520
